FAERS Safety Report 14587638 (Version 1)
Quarter: 2018Q1

REPORT INFORMATION
  Report Type: Spontaneous
  Country: US (occurrence: US)
  Receive Date: 20180301
  Receipt Date: 20180301
  Transmission Date: 20180509
  Serious: Yes (Hospitalization)
  Sender: FDA-Public Use
  Company Number: US-BRACCO-014594

PATIENT
  Age: 77 Year
  Sex: Male

DRUGS (13)
  1. ISOVUE 370 [Suspect]
     Active Substance: IOPAMIDOL
     Indication: ANGIOGRAM
     Route: 042
     Dates: start: 20170417, end: 20170417
  2. ASPIRIN 81 [Concomitant]
     Active Substance: ASPIRIN
  3. FLUTICASONE. [Concomitant]
     Active Substance: FLUTICASONE
  4. LORATADINE. [Concomitant]
     Active Substance: LORATADINE
  5. DULOXETINE. [Concomitant]
     Active Substance: DULOXETINE
  6. ROSUVASTATIN. [Concomitant]
     Active Substance: ROSUVASTATIN
  7. BUPROPION. [Concomitant]
     Active Substance: BUPROPION
  8. CELEBREX [Concomitant]
     Active Substance: CELECOXIB
  9. METOPROLOL. [Concomitant]
     Active Substance: METOPROLOL
  10. MULTIVITAMIN [Concomitant]
     Active Substance: VITAMINS
  11. RABEPRAZOLE [Concomitant]
     Active Substance: RABEPRAZOLE
  12. RAMIPRIL. [Concomitant]
     Active Substance: RAMIPRIL
  13. FISH OIL [Concomitant]
     Active Substance: FISH OIL

REACTIONS (2)
  - Anaphylactic shock [Recovering/Resolving]
  - Cardiac arrest [Recovering/Resolving]

NARRATIVE: CASE EVENT DATE: 20170417
